FAERS Safety Report 14984417 (Version 2)
Quarter: 2018Q2

REPORT INFORMATION
  Report Type: Spontaneous
  Country: CO (occurrence: CO)
  Receive Date: 20180607
  Receipt Date: 20180625
  Transmission Date: 20180711
  Serious: Yes (Other)
  Sender: FDA-Public Use
  Company Number: CO-MYLANLABS-2018M1037813

PATIENT
  Age: 26 Year
  Sex: Male

DRUGS (2)
  1. PREDNISOLONE. [Suspect]
     Active Substance: PREDNISOLONE
     Indication: STILL^S DISEASE
     Route: 065
  2. NAPROXEN. [Concomitant]
     Active Substance: NAPROXEN
     Indication: STILL^S DISEASE
     Dosage: 250 MG EVERY 8 HOURS
     Route: 065

REACTIONS (4)
  - Osteoporosis [Unknown]
  - Diabetes mellitus [Unknown]
  - Hypertension [Unknown]
  - Osteonecrosis [Unknown]
